FAERS Safety Report 9177474 (Version 2)
Quarter: 2013Q2

REPORT INFORMATION
  Report Type: Spontaneous
  Country: US (occurrence: US)
  Receive Date: 20130321
  Receipt Date: 20130422
  Transmission Date: 20140414
  Serious: Yes (Other)
  Sender: FDA-Public Use
  Company Number: US-PFIZER INC-2013091318

PATIENT
  Age: 61 Year
  Sex: Male
  Weight: 95.24 kg

DRUGS (1)
  1. EFFEXOR [Suspect]
     Indication: DEPRESSION
     Dosage: UNK, 1X/DAY
     Route: 048

REACTIONS (6)
  - Accident at work [Unknown]
  - Rotator cuff syndrome [Unknown]
  - Brain injury [Unknown]
  - Vertigo [Unknown]
  - Headache [Unknown]
  - Emotional disorder [Unknown]
